FAERS Safety Report 15340706 (Version 2)
Quarter: 2018Q3

REPORT INFORMATION
  Report Type: Spontaneous
  Country: FR (occurrence: FR)
  Receive Date: 20180831
  Receipt Date: 20180831
  Transmission Date: 20181010
  Serious: Yes (Other)
  Sender: FDA-Public Use
  Company Number: PHHY2018FR082390

PATIENT
  Age: 3 Year
  Sex: Female
  Weight: 22.5 kg

DRUGS (6)
  1. UN?ALFA [Suspect]
     Active Substance: ALFACALCIDOL
     Indication: OSTEODYSTROPHY
     Dosage: 5 GTT, QD (SOLUTION BUVABLE EN GOUTTES)
     Route: 048
  2. MIMPARA [Suspect]
     Active Substance: CINACALCET HYDROCHLORIDE
     Indication: HYPERPARATHYROIDISM
     Dosage: 30 MG, QD
     Route: 048
     Dates: start: 20160223
  3. CORTANCYL [Suspect]
     Active Substance: PREDNISONE
     Indication: RENAL TRANSPLANT
     Dosage: 2 MG, QD
     Route: 048
  4. NEORAL [Suspect]
     Active Substance: CYCLOSPORINE
     Indication: RENAL TRANSPLANT
     Dosage: 20 MG, QD (SOLUTION BUVABLE EN FLACON)
     Route: 048
  5. ENALAPRIL [Suspect]
     Active Substance: ENALAPRIL
     Indication: RENAL TRANSPLANT
     Dosage: 12.5 MG, QD (MALEATE D^)
     Route: 048
  6. RENVELA [Suspect]
     Active Substance: SEVELAMER CARBONATE
     Indication: CHRONIC KIDNEY DISEASE-MINERAL AND BONE DISORDER
     Dosage: 7200 MG, QD
     Route: 048

REACTIONS (1)
  - Precocious puberty [Not Recovered/Not Resolved]

NARRATIVE: CASE EVENT DATE: 20180501
